FAERS Safety Report 21229327 (Version 1)
Quarter: 2022Q3

REPORT INFORMATION
  Report Type: Report from Study
  Country: CO (occurrence: CO)
  Receive Date: 20220818
  Receipt Date: 20220818
  Transmission Date: 20221027
  Serious: Yes (Other)
  Sender: FDA-Public Use
  Company Number: CO-ABBVIE-22K-036-4500836-00

PATIENT
  Sex: Female
  Weight: 60 kg

DRUGS (5)
  1. HUMIRA [Suspect]
     Active Substance: ADALIMUMAB
     Indication: Rheumatoid arthritis
     Route: 058
     Dates: start: 20090123
  2. HUMIRA [Suspect]
     Active Substance: ADALIMUMAB
     Indication: Rheumatoid arthritis
     Route: 058
  3. METOPROLOL [Concomitant]
     Active Substance: METOPROLOL
     Indication: Cardiac disorder
     Route: 048
  4. LOSARTAN [Concomitant]
     Active Substance: LOSARTAN
     Indication: Hypertension
     Route: 048
  5. ISOSORBIDE DINITRATE [Concomitant]
     Active Substance: ISOSORBIDE DINITRATE
     Indication: Myocardial ischaemia
     Route: 048

REACTIONS (4)
  - Chronic obstructive pulmonary disease [Recovering/Resolving]
  - Myocardial ischaemia [Recovering/Resolving]
  - Sleep apnoea syndrome [Recovering/Resolving]
  - Angina unstable [Unknown]
